FAERS Safety Report 17108370 (Version 1)
Quarter: 2019Q4

REPORT INFORMATION
  Report Type: Spontaneous
  Country: BR (occurrence: BR)
  Receive Date: 20191203
  Receipt Date: 20191203
  Transmission Date: 20200122
  Serious: Yes (Hospitalization)
  Sender: FDA-Public Use
  Company Number: BR-SHIRE-BR201940972

PATIENT

DRUGS (4)
  1. VENVANSE [Suspect]
     Active Substance: LISDEXAMFETAMINE DIMESYLATE
     Dosage: 50 MILLIGRAM
     Route: 065
  2. VENVANSE [Suspect]
     Active Substance: LISDEXAMFETAMINE DIMESYLATE
     Dosage: 50 MILLIGRAM
     Route: 065
  3. VENVANSE [Suspect]
     Active Substance: LISDEXAMFETAMINE DIMESYLATE
     Dosage: 70 MILLIGRAM
     Route: 065
  4. VENVANSE [Suspect]
     Active Substance: LISDEXAMFETAMINE DIMESYLATE
     Indication: PRODUCT USED FOR UNKNOWN INDICATION
     Dosage: 30 MILLIGRAM
     Route: 065

REACTIONS (3)
  - Product availability issue [Unknown]
  - Migraine [Unknown]
  - Underdose [Unknown]
